FAERS Safety Report 25246561 (Version 1)
Quarter: 2025Q2

REPORT INFORMATION
  Report Type: Spontaneous
  Country: AU (occurrence: AU)
  Receive Date: 20250428
  Receipt Date: 20250428
  Transmission Date: 20250716
  Serious: Yes (Other)
  Sender: ACCORD
  Company Number: None

PATIENT
  Age: 84 Year
  Sex: Male

DRUGS (4)
  1. QUETIAPINE FUMARATE [Suspect]
     Active Substance: QUETIAPINE FUMARATE
     Indication: Product used for unknown indication
  2. SINEMET [Concomitant]
     Active Substance: CARBIDOPA\LEVODOPA
  3. DONEPEZIL HYDROCHLORIDE [Concomitant]
     Active Substance: DONEPEZIL HYDROCHLORIDE
  4. RISPERIDONE [Concomitant]
     Active Substance: RISPERIDONE

REACTIONS (5)
  - Constipation [Unknown]
  - Gastrointestinal haemorrhage [Unknown]
  - Loss of consciousness [Unknown]
  - Melaena [Unknown]
  - Pneumonia [Unknown]
